FAERS Safety Report 5305560-4 (Version None)
Quarter: 2007Q2

REPORT INFORMATION
  Report Type: 
  Country: None (occurrence: None)
  Receive Date: 20070424
  Receipt Date: 20070412
  Transmission Date: 20071010
  Serious: Yes (Death)
  Sender: FDA-Public Use
  Company Number: US-JNJFOC-20070402781

PATIENT
  Sex: Female
  Weight: 97.98 kg

DRUGS (17)
  1. REMICADE [Suspect]
     Indication: RHEUMATOID ARTHRITIS
     Route: 042
  2. LASIX [Concomitant]
  3. PREDNISONE TAB [Concomitant]
  4. PRILOSEC [Concomitant]
  5. TRIAVIL [Concomitant]
     Dosage: DOSAGE 2/25 3 HS
  6. COUMADIN [Concomitant]
  7. AMERGE [Concomitant]
     Indication: MIGRAINE
  8. ZOCOR [Concomitant]
  9. NEURONTIN [Concomitant]
  10. FOLIC ACID [Concomitant]
  11. STALEVO 100 [Concomitant]
  12. HUMIRA [Concomitant]
  13. HYDROCODONE [Concomitant]
     Dosage: 10/600 MG QID
  14. B-12 [Concomitant]
     Route: 050
  15. TOPROL-XL [Concomitant]
  16. REQUIP [Concomitant]
  17. MOBIC [Concomitant]

REACTIONS (1)
  - DEATH [None]
